FAERS Safety Report 4849041-0 (Version None)
Quarter: 2005Q4

REPORT INFORMATION
  Report Type: 
  Country: None (occurrence: None)
  Receive Date: 20051209
  Receipt Date: 20051130
  Transmission Date: 20060501
  Serious: Yes (Hospitalization)
  Sender: FDA-Public Use
  Company Number: GB-JNJFOC-20051200424

PATIENT
  Sex: Female
  Weight: 75 kg

DRUGS (7)
  1. REMICADE [Suspect]
     Indication: RHEUMATOID ARTHRITIS
     Route: 042
  2. METHOTREXATE [Concomitant]
  3. VOLTAREN [Concomitant]
     Route: 065
  4. FERROUS SULFATE TAB [Concomitant]
     Route: 065
  5. FLUOXETINE [Concomitant]
     Route: 065
  6. MISOPROSTOL [Concomitant]
     Route: 065
  7. TRAMADOL HCL [Concomitant]
     Route: 065

REACTIONS (1)
  - BREAST CANCER [None]
